FAERS Safety Report 6118002-6 (Version None)
Quarter: 2009Q1

REPORT INFORMATION
  Report Type: 
  Country: None (occurrence: None)
  Receive Date: 20090314
  Receipt Date: 20090225
  Transmission Date: 20090719
  Serious: No
  Sender: FDA-Public Use
  Company Number: US-ABBOTT-09P-163-0501940-00

PATIENT
  Sex: Female
  Weight: 56.75 kg

DRUGS (5)
  1. HUMIRA [Suspect]
     Indication: ANKYLOSING SPONDYLITIS
     Route: 058
     Dates: start: 20081124
  2. NAPROXEN [Concomitant]
     Indication: ANKYLOSING SPONDYLITIS
     Dosage: 1 OR 2 TABLETS AS REQUIRED
  3. SULFASALAZINE [Concomitant]
     Indication: ANKYLOSING SPONDYLITIS
     Dosage: 500 MG FORM STRENGTH
  4. PRED FORTE [Concomitant]
     Indication: EYE DISORDER
     Dosage: EYE DROPS
     Route: 047
  5. PRED FORTE [Concomitant]
     Indication: ARTHRITIS

REACTIONS (6)
  - CONTUSION [None]
  - DRUG DELIVERY SYSTEM MALFUNCTION [None]
  - FEELING HOT [None]
  - INJECTION SITE IRRITATION [None]
  - INJECTION SITE URTICARIA [None]
  - PRURITUS [None]
